FAERS Safety Report 9002143 (Version 1)
Quarter: 2013Q1

REPORT INFORMATION
  Report Type: Spontaneous
  Country: US (occurrence: US)
  Receive Date: 20130107
  Receipt Date: 20130107
  Transmission Date: 20140127
  Serious: Yes (Hospitalization)
  Sender: FDA-Public Use
  Company Number: US-ELI_LILLY_AND_COMPANY-US201301000067

PATIENT
  Sex: Female

DRUGS (2)
  1. ADCIRCA [Suspect]
  2. LETAIRIS [Concomitant]
     Dosage: 10 MG, QD
     Dates: start: 20090220

REACTIONS (3)
  - Pulmonary oedema [Unknown]
  - Nasopharyngitis [Unknown]
  - Vomiting [Unknown]
